FAERS Safety Report 9206070 (Version 5)
Quarter: 2014Q3

REPORT INFORMATION
  Report Type: Spontaneous
  Country: TR (occurrence: TR)
  Receive Date: 20130403
  Receipt Date: 20140819
  Transmission Date: 20150326
  Serious: Yes (Disabling, Other)
  Sender: FDA-Public Use
  Company Number: TR-AMGEN-TURSP2013021851

PATIENT
  Age: 18 Year
  Sex: Female
  Weight: 68 kg

DRUGS (5)
  1. DELTACORTRIL                       /00016201/ [Concomitant]
     Dosage: 7.5 MG, ONCE A DAY
     Route: 058
     Dates: start: 2003
  2. ENBREL [Suspect]
     Active Substance: ETANERCEPT
     Indication: PSORIATIC ARTHROPATHY
     Dosage: 25 MG, TWICE WEEKLY
     Route: 058
     Dates: start: 20101105
  3. MYFORTIC [Suspect]
     Active Substance: MYCOPHENOLATE SODIUM
     Indication: BLINDNESS
     Dosage: 720 MG, 2X/DAY
     Route: 048
     Dates: start: 2013, end: 20131030
  4. DELTACORTRIL                       /00016201/ [Concomitant]
     Dosage: 5 MG, THREE TIMES A DAY
     Route: 048
  5. METHOTREXATE SODIUM. [Suspect]
     Active Substance: METHOTREXATE SODIUM
     Indication: PRODUCT USED FOR UNKNOWN INDICATION
     Dosage: UNK
     Route: 048
     Dates: start: 2007, end: 20130315

REACTIONS (10)
  - Gait disturbance [Recovered/Resolved]
  - Abdominal pain [Recovered/Resolved]
  - Nausea [Recovered/Resolved]
  - Pain [Recovered/Resolved]
  - Bone disorder [Not Recovered/Not Resolved]
  - Muscle spasms [Recovered/Resolved]
  - Multiple sclerosis [Recovered/Resolved]
  - Walking disability [Recovered/Resolved]
  - Diarrhoea [Recovered/Resolved]
  - Influenza [Recovered/Resolved]

NARRATIVE: CASE EVENT DATE: 201302
